FAERS Safety Report 6171034-4 (Version None)
Quarter: 2009Q2

REPORT INFORMATION
  Report Type: 
  Country: None (occurrence: None)
  Receive Date: 20090429
  Receipt Date: 20090421
  Transmission Date: 20091009
  Serious: Yes (Life-Threatening)
  Sender: FDA-Public Use
  Company Number: GB-JNJFOC-20090405256

PATIENT
  Age: 26 Year
  Sex: Female
  Weight: 57.2 kg

DRUGS (10)
  1. IBUPROFEN [Suspect]
     Indication: DRUG USE FOR UNKNOWN INDICATION
  2. PARACETAMOL [Suspect]
  3. PARACETAMOL [Suspect]
     Indication: DRUG USE FOR UNKNOWN INDICATION
  4. CHAMPIX [Suspect]
     Indication: SMOKING CESSATION THERAPY
     Route: 048
  5. ANADIN EXTRA [Suspect]
     Indication: DRUG USE FOR UNKNOWN INDICATION
  6. ALCOHOL [Suspect]
     Indication: DRUG USE FOR UNKNOWN INDICATION
  7. YASMIN [Concomitant]
  8. SALBUTAMOL [Concomitant]
  9. DIANETTE [Concomitant]
  10. BECLOMETHASONE DIPROPIONATE [Concomitant]

REACTIONS (3)
  - ABDOMINAL PAIN [None]
  - MULTIPLE DRUG OVERDOSE INTENTIONAL [None]
  - NAUSEA [None]
